FAERS Safety Report 4989788-9 (Version None)
Quarter: 2006Q2

REPORT INFORMATION
  Report Type: 
  Country: None (occurrence: None)
  Receive Date: 20060501
  Receipt Date: 20060416
  Transmission Date: 20061013
  Serious: Yes (Death, Hospitalization)
  Sender: FDA-Public Use
  Company Number: 2006MP000553

PATIENT
  Sex: Female

DRUGS (1)
  1. GLIADEL [Suspect]
     Dosage: X1
     Dates: start: 20060401, end: 20060401

REACTIONS (4)
  - BRAIN HERNIATION [None]
  - CEREBRAL ISCHAEMIA [None]
  - STATUS EPILEPTICUS [None]
  - SUBARACHNOID HAEMORRHAGE [None]
